FAERS Safety Report 14467132 (Version 2)
Quarter: 2018Q1

REPORT INFORMATION
  Report Type: Spontaneous
  Country: GB (occurrence: GB)
  Receive Date: 20180131
  Receipt Date: 20180214
  Transmission Date: 20180509
  Serious: Yes (Hospitalization)
  Sender: FDA-Public Use
  Company Number: GB-MYLANLABS-2018M1005681

PATIENT
  Age: 16 Year
  Sex: Female

DRUGS (60)
  1. AZATHIOPRINE. [Suspect]
     Active Substance: AZATHIOPRINE
     Dosage: 100 MG, QD
     Route: 048
     Dates: start: 20160831, end: 20161211
  2. HUMIRA [Suspect]
     Active Substance: ADALIMUMAB
     Dosage: 40 MG, Q2W
     Route: 058
     Dates: start: 201710
  3. PROTOPIC [Concomitant]
     Active Substance: TACROLIMUS
     Indication: VASCULITIS
  4. BETAMETHASONE. [Concomitant]
     Active Substance: BETAMETHASONE
     Indication: CROHN^S DISEASE
  5. DOXYCYCLINE. [Concomitant]
     Active Substance: DOXYCYCLINE
     Indication: GRANULOMA
     Dosage: 400 MG, QD
     Dates: start: 20171027
  6. DOXYCYCLINE. [Concomitant]
     Active Substance: DOXYCYCLINE
     Indication: VASCULITIS
     Dosage: 400 MG, QD
     Route: 048
     Dates: start: 20171222
  7. GENTAMICIN. [Concomitant]
     Active Substance: GENTAMICIN
     Indication: CROHN^S DISEASE
     Dosage: 400 MG, QD
     Route: 048
     Dates: start: 20171229, end: 20180101
  8. DERMOL                             /00337102/ [Concomitant]
     Active Substance: CLOBETASOL PROPIONATE
     Indication: VASCULITIS
  9. OMEPRAZOLE. [Concomitant]
     Active Substance: OMEPRAZOLE
     Dosage: 20 MG, QD
     Route: 048
     Dates: start: 20170828
  10. PREDNISOLONE. [Concomitant]
     Active Substance: PREDNISOLONE
     Indication: CROHN^S DISEASE
     Dosage: 40 MG, QD
     Route: 048
     Dates: start: 20171026
  11. FERROUS SULFATE. [Concomitant]
     Active Substance: FERROUS SULFATE
     Indication: CROHN^S DISEASE
     Dosage: 200 MG, QD
     Route: 048
     Dates: start: 20121003
  12. AZATHIOPRINE. [Suspect]
     Active Substance: AZATHIOPRINE
     Dosage: UNK
     Route: 048
  13. ADCAL D3 [Concomitant]
     Active Substance: CALCIUM CARBONATE\CHOLECALCIFEROL
     Indication: VITAMIN SUPPLEMENTATION
     Dosage: UNK UNK, QD
     Route: 048
     Dates: start: 20171222
  14. KETOCONAZOLE. [Concomitant]
     Active Substance: KETOCONAZOLE
     Indication: FUNGAL INFECTION
     Dosage: UNK UNK, QD
     Route: 061
     Dates: start: 20170731
  15. PROTOPIC [Concomitant]
     Active Substance: TACROLIMUS
     Indication: VASCULITIS
     Dosage: 0.1 %, UNK
     Route: 061
  16. FRESUBIN                           /07459901/ [Concomitant]
     Active Substance: CARBOHYDRATES\FATTY ACIDS\MINERALS\PROTEIN\VITAMINS
     Indication: GRANULOMA
     Dosage: 200 ML, QD
     Route: 048
     Dates: start: 20171028
  17. FRESUBIN                           /07459901/ [Concomitant]
     Active Substance: CARBOHYDRATES\FATTY ACIDS\MINERALS\PROTEIN\VITAMINS
     Indication: VASCULITIS
  18. DOXYCYCLINE. [Concomitant]
     Active Substance: DOXYCYCLINE
     Indication: CROHN^S DISEASE
  19. CHLORHEXIDINE [Concomitant]
     Active Substance: CHLORHEXIDINE
     Indication: GRANULOMA
     Dosage: 40 ML, QD
     Dates: start: 20171030
  20. NYSTATIN. [Concomitant]
     Active Substance: NYSTATIN
     Indication: GRANULOMA
     Dosage: 400000 IU, QD
     Route: 061
     Dates: start: 20171027
  21. NYSTATIN. [Concomitant]
     Active Substance: NYSTATIN
     Indication: CROHN^S DISEASE
  22. METRONIDAZOLE. [Concomitant]
     Active Substance: METRONIDAZOLE
     Dosage: 1200 MG, QD
     Route: 048
     Dates: start: 20170907, end: 20171031
  23. METRONIDAZOLE. [Concomitant]
     Active Substance: METRONIDAZOLE
     Dosage: 1200 MG, QD
     Route: 048
     Dates: start: 20171229
  24. CIPROFLOXACIN. [Concomitant]
     Active Substance: CIPROFLOXACIN
     Dosage: 1000 MG, QD
     Route: 048
     Dates: start: 20161109, end: 20170107
  25. KETOCONAZOLE. [Concomitant]
     Active Substance: KETOCONAZOLE
     Indication: FUNGAL SKIN INFECTION
  26. FRESUBIN                           /07459901/ [Concomitant]
     Active Substance: CARBOHYDRATES\FATTY ACIDS\MINERALS\PROTEIN\VITAMINS
     Indication: NUTRITIONAL SUPPLEMENTATION
     Dosage: UNK
  27. FRESUBIN                           /07459901/ [Concomitant]
     Active Substance: CARBOHYDRATES\FATTY ACIDS\MINERALS\PROTEIN\VITAMINS
     Indication: HYPOPHAGIA
  28. SYNALAR [Concomitant]
     Active Substance: FLUOCINOLONE ACETONIDE
     Indication: INFECTION
     Dosage: UNK UNK, QD
     Dates: start: 20170731
  29. CIPROFLOXACIN. [Concomitant]
     Active Substance: CIPROFLOXACIN
     Dosage: 1500 MG, QD
     Route: 048
     Dates: start: 20170810, end: 20170827
  30. CIPROFLOXACIN. [Concomitant]
     Active Substance: CIPROFLOXACIN
     Dosage: 1500 MG, QD
     Route: 048
     Dates: start: 20171031
  31. CIPROFLOXACIN. [Concomitant]
     Active Substance: CIPROFLOXACIN
     Dosage: 1500 MG, QD
     Route: 048
     Dates: start: 20170112, end: 20170518
  32. CIPROFLOXACIN. [Concomitant]
     Active Substance: CIPROFLOXACIN
     Dosage: 750 MG, UNK
     Route: 040
  33. SYNALAR [Concomitant]
     Active Substance: FLUOCINOLONE ACETONIDE
     Indication: SKIN INFECTION
  34. EUMOVATE N [Concomitant]
     Indication: GRANULOMA
     Dosage: 0.1 %, QD
     Route: 061
     Dates: start: 20171130
  35. LOTRIDERM [Concomitant]
     Active Substance: BETAMETHASONE DIPROPIONATE\CLOTRIMAZOLE
     Indication: GRANULOMA
     Dosage: UNK
     Route: 061
     Dates: start: 20171028
  36. BETAMETHASONE. [Concomitant]
     Active Substance: BETAMETHASONE
     Indication: GRANULOMA
     Dosage: 2000 ?G, QD
     Dates: start: 20171028
  37. METRONIDAZOLE. [Concomitant]
     Active Substance: METRONIDAZOLE
     Indication: PRODUCT USED FOR UNKNOWN INDICATION
     Dosage: 1500 MG, QD
     Route: 040
     Dates: start: 20170726, end: 20170810
  38. METRONIDAZOLE. [Concomitant]
     Active Substance: METRONIDAZOLE
     Dosage: 1200 MG, QD
     Route: 048
     Dates: start: 20170112, end: 20170418
  39. PARACETAMOL [Concomitant]
     Active Substance: ACETAMINOPHEN
     Indication: PROCEDURAL PAIN
     Dosage: 4 G, QD
     Route: 048
     Dates: start: 20170822, end: 20170907
  40. ALIMEMAZINE [Concomitant]
     Active Substance: TRIMEPRAZINE
     Indication: CROHN^S DISEASE
     Dosage: 30 MG, QD
     Route: 048
     Dates: start: 20171222, end: 20171223
  41. HUMIRA [Suspect]
     Active Substance: ADALIMUMAB
     Indication: CROHN^S DISEASE
     Dosage: 80 MG, Q2W
     Route: 058
     Dates: start: 20170112, end: 20170727
  42. ADCAL D3 [Concomitant]
     Active Substance: CALCIUM CARBONATE\CHOLECALCIFEROL
     Indication: VITAMIN D DEFICIENCY
     Dosage: 1 DF, QD
     Route: 048
     Dates: start: 20171028
  43. ADCAL D3 [Concomitant]
     Active Substance: CALCIUM CARBONATE\CHOLECALCIFEROL
     Indication: CROHN^S DISEASE
  44. PROTOPIC [Concomitant]
     Active Substance: TACROLIMUS
     Indication: GRANULOMA
     Dosage: 0.2 %, QD
     Route: 061
     Dates: start: 2016, end: 20171130
  45. TRIMOVATE                          /00456501/ [Concomitant]
     Indication: RASH
     Dosage: UNK UNK, QD
     Route: 061
     Dates: start: 20170729
  46. LOTRIDERM [Concomitant]
     Active Substance: BETAMETHASONE DIPROPIONATE\CLOTRIMAZOLE
     Indication: VASCULITIS
  47. CHLORHEXIDINE [Concomitant]
     Active Substance: CHLORHEXIDINE
     Indication: VASCULITIS
     Dosage: 40 ML, QD
     Route: 048
     Dates: start: 20171222
  48. NYSTATIN. [Concomitant]
     Active Substance: NYSTATIN
     Indication: VASCULITIS
     Dosage: 4 ML, QD
     Route: 048
     Dates: start: 20171222
  49. HYDROUS [Concomitant]
     Indication: CROHN^S DISEASE
     Dosage: UNK
     Route: 061
     Dates: start: 20171222
  50. CIPROFLOXACIN. [Concomitant]
     Active Substance: CIPROFLOXACIN
     Indication: CROHN^S DISEASE
     Dosage: 1200 MG, QD
     Route: 040
     Dates: start: 20170827, end: 20170907
  51. CIPROFLOXACIN. [Concomitant]
     Active Substance: CIPROFLOXACIN
     Dosage: 1500 MG, QD
     Route: 048
     Dates: start: 20170907, end: 20171027
  52. CIPROFLOXACIN. [Concomitant]
     Active Substance: CIPROFLOXACIN
     Dosage: 1200 MG, QD
     Route: 040
     Dates: start: 20171027, end: 20171030
  53. CIPROFLOXACIN. [Concomitant]
     Active Substance: CIPROFLOXACIN
     Dosage: 1200 MG, QD
     Route: 040
     Dates: start: 20170726, end: 20170810
  54. OMEPRAZOLE. [Concomitant]
     Active Substance: OMEPRAZOLE
     Indication: CROHN^S DISEASE
     Dosage: 40 MG, QD
     Route: 040
     Dates: start: 20170107, end: 20170112
  55. EUMOVATE N [Concomitant]
     Indication: VASCULITIS
  56. PARACETAMOL [Concomitant]
     Active Substance: ACETAMINOPHEN
     Indication: CROHN^S DISEASE
     Dosage: 3000 MG, QD
     Route: 048
     Dates: start: 20171222, end: 20171226
  57. AZATHIOPRINE. [Suspect]
     Active Substance: AZATHIOPRINE
     Indication: CROHN^S DISEASE
     Dosage: 150 MG, QD
     Route: 048
     Dates: start: 20161212, end: 201708
  58. DERMOL                             /00337102/ [Concomitant]
     Active Substance: CLOBETASOL PROPIONATE
     Indication: GRANULOMA
     Dosage: UNK UNK, QD
     Route: 061
     Dates: start: 2016
  59. BETAMETHASONE. [Concomitant]
     Active Substance: BETAMETHASONE
     Indication: VASCULITIS
  60. MOVICOL [Concomitant]
     Active Substance: POLYETHYLENE GLYCOL 3350\POTASSIUM CHLORIDE\SODIUM BICARBONATE\SODIUM CHLORIDE
     Indication: CROHN^S DISEASE
     Dosage: 2 DF, QD
     Route: 048
     Dates: start: 20161109

REACTIONS (3)
  - Anal fistula [Recovered/Resolved]
  - Erythema multiforme [Not Recovered/Not Resolved]
  - Viral skin infection [Not Recovered/Not Resolved]

NARRATIVE: CASE EVENT DATE: 20180108
